FAERS Safety Report 5841896-6 (Version None)
Quarter: 2008Q3

REPORT INFORMATION
  Report Type: 
  Country: None (occurrence: None)
  Receive Date: 20080811
  Receipt Date: 20080811
  Transmission Date: 20090109
  Serious: Yes (Hospitalization, Other)
  Sender: FDA-Public Use
  Company Number: None

PATIENT
  Age: 68 Year
  Sex: Male
  Weight: 124.7392 kg

DRUGS (1)
  1. FUROSEMIDE [Suspect]
     Indication: FLUID RETENTION
     Dosage: TWO PILLS AM, 1 PILL NOON DAILY PO
     Route: 048
     Dates: start: 20000110, end: 20080810

REACTIONS (6)
  - ANGINA PECTORIS [None]
  - CONFUSIONAL STATE [None]
  - DYSPNOEA [None]
  - FEAR [None]
  - PANIC REACTION [None]
  - SUFFOCATION FEELING [None]
